FAERS Safety Report 8932564 (Version 1)
Quarter: 2012Q4

REPORT INFORMATION
  Report Type: Spontaneous
  Country: US (occurrence: None)
  Receive Date: 20121119
  Receipt Date: 20121119
  Transmission Date: 20130627
  Serious: Yes (Other)
  Sender: FDA-Public Use
  Company Number: DSA_60852_2012

PATIENT
  Sex: Female
  Weight: 2.5 kg

DRUGS (3)
  1. DILTIAZEM HYDROCHLORIDE [Suspect]
     Indication: ATRIAL FLUTTER
     Route: 064
  2. FLECAINIDE [Suspect]
     Indication: ATRIAL FLUTTER
     Route: 064
  3. AMIODARONE [Suspect]
     Indication: ATRIAL FLUTTER
     Route: 064

REACTIONS (4)
  - Maternal drugs affecting foetus [None]
  - Low birth weight baby [None]
  - Foetal growth restriction [None]
  - Forceps delivery [None]
